FAERS Safety Report 17430755 (Version 1)
Quarter: 2020Q1

REPORT INFORMATION
  Report Type: Spontaneous
  Country: US (occurrence: US)
  Receive Date: 20200217
  Receipt Date: 20200217
  Transmission Date: 20200409
  Serious: Yes (Other)
  Sender: FDA-Public Use
  Company Number: None

PATIENT
  Age: 69 Year
  Sex: Female
  Weight: 83.25 kg

DRUGS (22)
  1. LEVOTHYROXINE. [Concomitant]
     Active Substance: LEVOTHYROXINE
  2. MULTIVITAMINE PRO-CORTISOL BALANCE [Concomitant]
  3. COMPLETE-K [Concomitant]
  4. MINOCYCLINE [Concomitant]
     Active Substance: MINOCYCLINE HYDROCHLORIDE
  5. PREMARIN [Concomitant]
     Active Substance: ESTROGENS, CONJUGATED
  6. PROAIR HFA [Concomitant]
     Active Substance: ALBUTEROL SULFATE
  7. SUPER-OX [Concomitant]
  8. SUMA ROOT [Concomitant]
  9. CPAP [Concomitant]
     Active Substance: DEVICE
  10. KD-LITJIC [Concomitant]
  11. GLUCOBALANCE [Concomitant]
  12. ATROPINE SULFATE. [Concomitant]
     Active Substance: ATROPINE SULFATE
  13. OFLOXACIN. [Concomitant]
     Active Substance: OFLOXACIN
  14. NATRGEST [Concomitant]
  15. LODIZYME-HP [Concomitant]
  16. BIO-DMULSION FORTE [Concomitant]
  17. NATACYN [Concomitant]
     Active Substance: NATAMYCIN
  18. FLUTICASONE. [Concomitant]
     Active Substance: FLUTICASONE
  19. IBUPROFEN. [Concomitant]
     Active Substance: IBUPROFEN
  20. PREDNISODONE ACETATE OPHTHALMIC SUSPENSION USP 1% [Suspect]
     Active Substance: PREDNISOLONE ACETATE
     Indication: CORNEAL FLAP COMPLICATION
     Dosage: ?          QUANTITY:5 DROP(S);?
     Route: 047
     Dates: start: 20200204, end: 20200216
  21. SALINE [Concomitant]
     Active Substance: SODIUM CHLORIDE
  22. VITAMIN D3 [Concomitant]
     Active Substance: CHOLECALCIFEROL

REACTIONS (3)
  - Dizziness [None]
  - Fear of falling [None]
  - Vertigo [None]

NARRATIVE: CASE EVENT DATE: 20200215
